FAERS Safety Report 21634759 (Version 9)
Quarter: 2023Q4

REPORT INFORMATION
  Report Type: Report from Study
  Country: DE (occurrence: DE)
  Receive Date: 20221123
  Receipt Date: 20231124
  Transmission Date: 20240109
  Serious: Yes (Death, Hospitalization, Other)
  Sender: FDA-Public Use
  Company Number: DE-002147023-NVSC2021DE091621

PATIENT
  Age: 72 Year
  Sex: Male
  Weight: 68 kg

DRUGS (12)
  1. COSENTYX [Suspect]
     Active Substance: SECUKINUMAB
     Indication: Psoriasis
     Dosage: 300 MG, QW
     Route: 058
     Dates: start: 20151023
  2. COSENTYX [Suspect]
     Active Substance: SECUKINUMAB
     Dosage: 300 MG, QW
     Route: 065
     Dates: start: 20170728
  3. COSENTYX [Suspect]
     Active Substance: SECUKINUMAB
     Dosage: 300 MG
     Route: 058
     Dates: start: 20181023
  4. COSENTYX [Suspect]
     Active Substance: SECUKINUMAB
     Dosage: 150 MG, QMO
     Route: 058
     Dates: start: 20200916, end: 20210315
  5. COSENTYX [Suspect]
     Active Substance: SECUKINUMAB
     Dosage: 300 MG, QMO (2X150 MG, EVERY 4 WEEKS)
     Route: 058
     Dates: end: 20221014
  6. ASPIRIN [Concomitant]
     Active Substance: ASPIRIN
     Indication: Coronary artery disease
     Dosage: UNK, 1-0-0-0 NEW
     Route: 065
  7. ASPIRIN [Concomitant]
     Active Substance: ASPIRIN
     Dosage: 1 DOSAGE FORM, QD, (100 MG 1-0-0, HEXAL)
     Route: 065
  8. ATORVASTATIN [Concomitant]
     Active Substance: ATORVASTATIN
     Indication: Product used for unknown indication
     Dosage: 1 DOSAGE FORM, QD, (0-0-1-0 NEW)
     Route: 065
  9. ATORVASTATIN [Concomitant]
     Active Substance: ATORVASTATIN
     Dosage: 1 DOSAGE FORM, QD, (0-0-1-0, -RATIOPHARM)
     Route: 065
  10. SIMVASTATIN [Concomitant]
     Active Substance: SIMVASTATIN
     Indication: Coronary artery disease
     Dosage: UNK
     Route: 065
  11. METAMIZOLE [Concomitant]
     Active Substance: METAMIZOLE
     Indication: Product used for unknown indication
     Dosage: 500 MG, (AS NEEDED)
     Route: 065
  12. ENOXAPARIN SODIUM [Concomitant]
     Active Substance: ENOXAPARIN SODIUM
     Indication: Product used for unknown indication
     Dosage: 1 DOSAGE FORM, QD (FOR 4 WEEKS POSTOP)
     Route: 058

REACTIONS (44)
  - Septic shock [Fatal]
  - Enterocolitis [Fatal]
  - Peritonitis [Fatal]
  - Escherichia infection [Fatal]
  - Pseudomonas infection [Fatal]
  - Lymphoma [Fatal]
  - Adenocarcinoma of colon [Recovered/Resolved]
  - Skin ulcer [Recovered/Resolved]
  - Diabetic foot [Recovered/Resolved]
  - Cellulitis [Recovered/Resolved]
  - Hypertension [Unknown]
  - Psoriasis [Unknown]
  - Foot deformity [Unknown]
  - Soft tissue swelling [Unknown]
  - Diabetic foot [Recovered/Resolved]
  - Diabetic foot [Recovered/Resolved]
  - Diabetic foot [Recovered/Resolved]
  - Gouty arthritis [Unknown]
  - Fibrous cortical defect [Unknown]
  - Skin ulcer [Recovered/Resolved]
  - Peripheral arterial occlusive disease [Not Recovered/Not Resolved]
  - Diabetic foot [Recovered/Resolved with Sequelae]
  - Skin ulcer [Recovered/Resolved with Sequelae]
  - Acinetobacter infection [Recovered/Resolved]
  - Type 2 diabetes mellitus [Unknown]
  - Post procedural haemorrhage [Unknown]
  - Hyperthyroidism [Unknown]
  - Neuropathy peripheral [Unknown]
  - Metastases to liver [Unknown]
  - Skin ulcer [Recovered/Resolved]
  - Limb injury [Recovered/Resolved]
  - Coronary artery disease [Recovered/Resolved]
  - Gait disturbance [Not Recovered/Not Resolved]
  - Wound [Unknown]
  - Fall [Not Recovered/Not Resolved]
  - Skin abrasion [Not Recovered/Not Resolved]
  - Chronic obstructive pulmonary disease [Not Recovered/Not Resolved]
  - Pleural disorder [Unknown]
  - Emphysema [Not Recovered/Not Resolved]
  - Diverticulum intestinal [Unknown]
  - Spinal osteoarthritis [Not Recovered/Not Resolved]
  - Prostatic calcification [Unknown]
  - Benign prostatic hyperplasia [Not Recovered/Not Resolved]
  - Product use issue [Unknown]

NARRATIVE: CASE EVENT DATE: 20191202
